FAERS Safety Report 13008632 (Version 8)
Quarter: 2017Q1

REPORT INFORMATION
  Report Type: Spontaneous
  Country: US (occurrence: US)
  Receive Date: 20161208
  Receipt Date: 20170303
  Transmission Date: 20170428
  Serious: No
  Sender: FDA-Public Use
  Company Number: US-PFIZER INC-2016559539

PATIENT
  Age: 67 Year
  Sex: Male
  Weight: 82 kg

DRUGS (7)
  1. THEOPHYLLINE [Concomitant]
     Active Substance: THEOPHYLLINE ANHYDROUS
     Dosage: UNK
  2. SUTENT [Suspect]
     Active Substance: SUNITINIB MALATE
     Indication: RENAL CANCER METASTATIC
     Dosage: 50 MG, CYCLIC (28 DAYS ON/14 DAYS OFF)
     Dates: start: 20161120
  3. SPIRIVA [Concomitant]
     Active Substance: TIOTROPIUM BROMIDE MONOHYDRATE
     Dosage: UNK
  4. HYDROCHLOROTHIAZIDE. [Concomitant]
     Active Substance: HYDROCHLOROTHIAZIDE
     Dosage: UNK
  5. SUTENT [Suspect]
     Active Substance: SUNITINIB MALATE
     Indication: METASTASES TO LUNG
     Dosage: 37.5 MG, CYCLIC (28 DAYS ON/14 DAYS OFF)
     Dates: start: 20170105
  6. ASPIRIN. [Concomitant]
     Active Substance: ASPIRIN
     Dosage: UNK
  7. SUTENT [Suspect]
     Active Substance: SUNITINIB MALATE
     Dosage: 37.5 MG, CYCLIC (28 DAYS ON/14 DAYS OFF)
     Dates: start: 20161120

REACTIONS (18)
  - Burning sensation [Unknown]
  - Blood potassium decreased [Unknown]
  - Neoplasm progression [Unknown]
  - Diarrhoea [Unknown]
  - Haemoptysis [Unknown]
  - Dyspnoea [Unknown]
  - Contusion [Unknown]
  - Urinary tract infection [Unknown]
  - Dry throat [Unknown]
  - Dysgeusia [Not Recovered/Not Resolved]
  - Musculoskeletal pain [Recovering/Resolving]
  - Productive cough [Unknown]
  - White blood cell count decreased [Unknown]
  - Pain [Unknown]
  - Condition aggravated [Unknown]
  - Fatigue [Unknown]
  - Lethargy [Unknown]
  - Dry skin [Unknown]
